FAERS Safety Report 23039531 (Version 1)
Quarter: 2023Q4

REPORT INFORMATION
  Report Type: Spontaneous
  Country: ES (occurrence: ES)
  Receive Date: 20231006
  Receipt Date: 20231006
  Transmission Date: 20240110
  Serious: Yes (Other)
  Sender: FDA-Public Use
  Company Number: ES-SUN PHARMACEUTICAL INDUSTRIES LTD-2023RR-410953

PATIENT
  Age: 43 Year
  Sex: Male
  Weight: 90 kg

DRUGS (1)
  1. TILDRAKIZUMAB [Suspect]
     Active Substance: TILDRAKIZUMAB
     Indication: Psoriasis
     Dosage: 100 MG,1 IN 12 WK
     Route: 058
     Dates: start: 20230627

REACTIONS (1)
  - Male sexual dysfunction [Unknown]

NARRATIVE: CASE EVENT DATE: 20230801
